FAERS Safety Report 21487076 (Version 1)
Quarter: 2022Q4

REPORT INFORMATION
  Report Type: Spontaneous
  Country: US (occurrence: None)
  Receive Date: 20221020
  Receipt Date: 20221020
  Transmission Date: 20230113
  Serious: Yes (Hospitalization, Other)
  Sender: FDA-Public Use
  Company Number: None

PATIENT
  Sex: 0

DRUGS (1)
  1. EVEROLIMUS [Suspect]
     Active Substance: EVEROLIMUS
     Indication: Breast cancer

REACTIONS (4)
  - Cerebral infarction [None]
  - Atrial flutter [None]
  - Atrial fibrillation [None]
  - Embolic stroke [None]

NARRATIVE: CASE EVENT DATE: 20220321
